FAERS Safety Report 13317255 (Version 1)
Quarter: 2017Q1

REPORT INFORMATION
  Report Type: Spontaneous
  Country: JP (occurrence: JP)
  Receive Date: 20170310
  Receipt Date: 20170310
  Transmission Date: 20170428
  Serious: Yes (Other)
  Sender: FDA-Public Use
  Company Number: JP-SUN PHARMACEUTICAL INDUSTRIES LTD-2017RR-135451

PATIENT
  Age: 3 Month
  Sex: Female
  Weight: 4.15 kg

DRUGS (4)
  1. SPIRONOLACTONE. [Concomitant]
     Active Substance: SPIRONOLACTONE
     Indication: BARTTER^S SYNDROME
     Dosage: 1.7MG/KG/DAY
     Route: 065
  2. CAPTOPRIL. [Suspect]
     Active Substance: CAPTOPRIL
     Indication: BARTTER^S SYNDROME
     Dosage: 0.9 MG/KG/DAY
     Route: 065
  3. POTASSIUM SUPPLEMENTATION [Concomitant]
     Indication: BARTTER^S SYNDROME
     Dosage: 2.5 MEQ/KG/DAY
     Route: 065
  4. LISINOPRIL. [Suspect]
     Active Substance: LISINOPRIL
     Indication: BARTTER^S SYNDROME
     Dosage: 0.06 MG/KG/DAY
     Route: 065

REACTIONS (1)
  - Acute kidney injury [Recovered/Resolved]
